FAERS Safety Report 15291863 (Version 4)
Quarter: 2019Q1

REPORT INFORMATION
  Report Type: Spontaneous
  Country: US (occurrence: US)
  Receive Date: 20180817
  Receipt Date: 20190302
  Transmission Date: 20190417
  Serious: Yes (Other)
  Sender: FDA-Public Use
  Company Number: US-PRINSTON PHARMACEUTICAL INC.-2018PRN00807

PATIENT
  Sex: Female
  Weight: 68.03 kg

DRUGS (9)
  1. UNSPECIFIED FLU SHOT [Suspect]
     Active Substance: INFLUENZA VIRUS VACCINE
  2. UNSPECIFIED DAILY VITAMIN [Concomitant]
  3. UNSPECIFIED STATIN [Concomitant]
     Indication: BLOOD CHOLESTEROL INCREASED
  4. ATENOLOL. [Suspect]
     Active Substance: ATENOLOL
     Indication: CARDIAC DISORDER
     Dosage: 25 MG, 2X/DAY
  5. NEXIUM [Concomitant]
     Active Substance: ESOMEPRAZOLE MAGNESIUM
     Dosage: UNK
     Dates: end: 2018
  6. VALSARTAN. [Suspect]
     Active Substance: VALSARTAN
     Indication: BLOOD PRESSURE ABNORMAL
     Dosage: 160 MG, 1X/DAY
     Route: 048
     Dates: start: 20160913, end: 20180212
  7. ATENOLOL. [Suspect]
     Active Substance: ATENOLOL
     Indication: MITRAL VALVE DISEASE
     Dosage: 25 MG, 1X/DAY
  8. JANUVIA [Concomitant]
     Active Substance: SITAGLIPTIN PHOSPHATE
  9. TUMS [Concomitant]
     Active Substance: CALCIUM CARBONATE
     Dosage: UNK
     Dates: start: 2018

REACTIONS (15)
  - Diarrhoea [Not Recovered/Not Resolved]
  - Dyspnoea [Recovered/Resolved]
  - Drug interaction [Recovered/Resolved]
  - Dizziness [Not Recovered/Not Resolved]
  - Headache [Not Recovered/Not Resolved]
  - Abdominal pain upper [Not Recovered/Not Resolved]
  - Pyrexia [Recovered/Resolved]
  - Injection site rash [Recovered/Resolved]
  - Gallbladder disorder [Recovered/Resolved]
  - Loss of consciousness [Recovered/Resolved]
  - Injection site swelling [Recovered/Resolved]
  - Heart rate increased [Not Recovered/Not Resolved]
  - Oropharyngeal pain [Not Recovered/Not Resolved]
  - Palpitations [Unknown]
  - Vomiting [Not Recovered/Not Resolved]

NARRATIVE: CASE EVENT DATE: 2017
